FAERS Safety Report 5458611-0 (Version None)
Quarter: 2007Q3

REPORT INFORMATION
  Report Type: 
  Country: None (occurrence: None)
  Receive Date: 20070919
  Receipt Date: 20070420
  Transmission Date: 20080115
  Serious: No
  Sender: FDA-Public Use
  Company Number: US-ASTRAZENECA-2007UW07179

PATIENT
  Age: 50 Year
  Sex: Female
  Weight: 54.4 kg

DRUGS (2)
  1. SEROQUEL [Suspect]
     Indication: BIPOLAR I DISORDER
     Dosage: 300 MG-50 MG AND MORE AT NIGHT
     Route: 048
     Dates: start: 20070301
  2. TYLENOL (CAPLET) [Concomitant]

REACTIONS (6)
  - ABNORMAL DREAMS [None]
  - CHEST PAIN [None]
  - DIZZINESS [None]
  - DRY MOUTH [None]
  - HEADACHE [None]
  - LETHARGY [None]
